FAERS Safety Report 19224852 (Version 1)
Quarter: 2021Q2

REPORT INFORMATION
  Report Type: Spontaneous
  Country: US (occurrence: US)
  Receive Date: 20210505
  Receipt Date: 20210505
  Transmission Date: 20210717
  Serious: No
  Sender: FDA-Public Use
  Company Number: US-CELGENEUS-USA-20210406448

PATIENT
  Sex: Female
  Weight: 73.09 kg

DRUGS (1)
  1. REVLIMID [Suspect]
     Active Substance: LENALIDOMIDE
     Indication: PLASMA CELL MYELOMA
     Dosage: 1 CAPSULE DAILY ON MONDAY THRU FRIDAY FOR 3 WEEKS ON AND THEN 1 WEEK OFF
     Route: 048
     Dates: start: 20201019

REACTIONS (2)
  - Rash [Unknown]
  - Pruritus [Unknown]
